FAERS Safety Report 19836762 (Version 3)
Quarter: 2021Q4

REPORT INFORMATION
  Report Type: Spontaneous
  Country: US (occurrence: US)
  Receive Date: 20210914
  Receipt Date: 20211103
  Transmission Date: 20220303
  Serious: Yes (Disabling, Other)
  Sender: FDA-Public Use
  Company Number: US-ELI_LILLY_AND_COMPANY-US202109002022

PATIENT
  Age: 61 Year
  Sex: Male

DRUGS (7)
  1. BASAGLAR [Suspect]
     Active Substance: INSULIN GLARGINE
     Indication: Type 2 diabetes mellitus
     Dosage: 85 U, EACH EVENING
     Route: 065
     Dates: start: 2019
  2. BASAGLAR [Suspect]
     Active Substance: INSULIN GLARGINE
     Dosage: 100 U, EACH EVENING
     Route: 058
  3. HUMALOG KWIKPEN [Suspect]
     Active Substance: INSULIN LISPRO
     Indication: Product used for unknown indication
     Dosage: 3 U, PRN (BEFORE MEAL)
     Route: 058
     Dates: start: 2019
  4. LANTUS [Concomitant]
     Active Substance: INSULIN GLARGINE
     Indication: Product used for unknown indication
  5. METFORMIN [Concomitant]
     Active Substance: METFORMIN HYDROCHLORIDE
     Indication: Type 2 diabetes mellitus
     Dosage: 2 PILLS IN THE MORNING AND 2 PILLS AT NIGHT
  6. JARDIANCE [Concomitant]
     Active Substance: EMPAGLIFLOZIN
     Indication: Product used for unknown indication
  7. HUMALOG [Concomitant]
     Active Substance: INSULIN LISPRO
     Indication: Type 2 diabetes mellitus
     Dosage: SLIDING SCALE- BASE OF 3 UNITS BEFORE EACH MEAL

REACTIONS (20)
  - Bell^s palsy [Unknown]
  - Glaucoma [Unknown]
  - Gangrene [Unknown]
  - Blindness [Unknown]
  - Eye disorder [Not Recovered/Not Resolved]
  - Foot deformity [Unknown]
  - Hypoaesthesia [Unknown]
  - Depression [Unknown]
  - Peripheral swelling [Unknown]
  - Fatigue [Unknown]
  - Illness [Unknown]
  - Diarrhoea [Unknown]
  - Oxygen saturation decreased [Unknown]
  - Head injury [Unknown]
  - Blister [Unknown]
  - Hyperkeratosis [Unknown]
  - Ear pain [Unknown]
  - Excessive cerumen production [Unknown]
  - Visual impairment [Unknown]
  - Blood glucose increased [Unknown]

NARRATIVE: CASE EVENT DATE: 20210701
